FAERS Safety Report 9384786 (Version 1)
Quarter: 2013Q3

REPORT INFORMATION
  Report Type: Spontaneous
  Country: BR (occurrence: BR)
  Receive Date: 20130705
  Receipt Date: 20130705
  Transmission Date: 20140515
  Serious: Yes (Other)
  Sender: FDA-Public Use
  Company Number: BR-JNJFOC-20130619793

PATIENT
  Age: 84 Year
  Sex: Female
  Weight: 68 kg

DRUGS (8)
  1. REMINYL ER [Suspect]
     Indication: DEMENTIA ALZHEIMER^S TYPE
     Route: 065
  2. REMINYL ER [Suspect]
     Indication: DEMENTIA ALZHEIMER^S TYPE
     Route: 065
     Dates: start: 2010
  3. FERROUS SULFATE [Suspect]
     Indication: PRODUCT USED FOR UNKNOWN INDICATION
     Route: 065
     Dates: start: 2013
  4. QUETIAPINE [Concomitant]
     Indication: AGGRESSION
     Route: 065
  5. SERTRALINE HYDROCHLORIDE [Concomitant]
     Indication: AGGRESSION
     Route: 065
  6. CAPTOPRIL [Concomitant]
     Indication: HYPERTENSION
     Route: 065
  7. RIVOTRIL [Concomitant]
     Indication: SLEEP DISORDER THERAPY
     Route: 065
  8. VITAMIN D [Concomitant]
     Route: 065
     Dates: start: 2013

REACTIONS (8)
  - Haematochezia [Not Recovered/Not Resolved]
  - Lung infection [Recovered/Resolved]
  - Dysentery [Recovered/Resolved]
  - Productive cough [Not Recovered/Not Resolved]
  - Fatigue [Unknown]
  - Faeces discoloured [Unknown]
  - Dysphagia [Unknown]
  - Wrong technique in drug usage process [Unknown]
